FAERS Safety Report 9492976 (Version 2)
Quarter: 2013Q3

REPORT INFORMATION
  Report Type: Spontaneous
  Country: US (occurrence: US)
  Receive Date: 20130902
  Receipt Date: 20130925
  Transmission Date: 20140515
  Serious: Yes (Hospitalization)
  Sender: FDA-Public Use
  Company Number: US-BIOGENIDEC-2013BI081628

PATIENT
  Age: 49 Year
  Sex: Female

DRUGS (7)
  1. TYSABRI [Suspect]
     Indication: MULTIPLE SCLEROSIS
     Route: 042
     Dates: start: 20111214
  2. VALIUM [Concomitant]
     Indication: NEURALGIA
     Dates: end: 2013
  3. NARCOTICS (NOS) [Concomitant]
     Indication: PAIN
     Dates: end: 2013
  4. AMANTADINE [Concomitant]
     Indication: MULTIPLE SCLEROSIS
     Dates: start: 201306
  5. LATUDA [Concomitant]
     Indication: NEURALGIA
     Dates: start: 201306
  6. CELEBREX [Concomitant]
     Indication: PAIN
     Dates: start: 201306
  7. ASPIRIN [Concomitant]
     Indication: PAIN
     Dates: start: 201306

REACTIONS (1)
  - Depression [Recovered/Resolved]
